FAERS Safety Report 6966838-1 (Version None)
Quarter: 2010Q3

REPORT INFORMATION
  Report Type: 
  Country: None (occurrence: None)
  Receive Date: 20100906
  Receipt Date: 20100824
  Transmission Date: 20110219
  Serious: Yes (Other)
  Sender: FDA-Public Use
  Company Number: PHFR2010GB01943

PATIENT
  Sex: Male

DRUGS (6)
  1. CLOZARIL [Suspect]
     Indication: SCHIZOPHRENIA, PARANOID TYPE
     Dosage: 200 MG + 400 MG
     Route: 048
     Dates: start: 20041223
  2. CLOZARIL [Suspect]
     Dosage: 500 MG
     Route: 048
  3. KWELLS [Concomitant]
     Indication: SALIVARY HYPERSECRETION
     Dosage: 300 UG, TID
  4. OMEPRAZOLE [Concomitant]
     Dosage: 20 MG, BID
     Route: 048
  5. AMITRIPTYLINE HYDROCHLORIDE [Concomitant]
     Indication: SALIVARY HYPERSECRETION
     Dosage: 50 MG, QD
  6. MULTI-VITAMINS [Concomitant]
     Dosage: 1 DF, QD

REACTIONS (5)
  - CONTUSION [None]
  - DYSKINESIA [None]
  - FALL [None]
  - MYOCLONUS [None]
  - THERMAL BURN [None]
